FAERS Safety Report 4781786-3 (Version None)
Quarter: 2005Q3

REPORT INFORMATION
  Report Type: 
  Country: None (occurrence: None)
  Receive Date: 20050927
  Receipt Date: 20050916
  Transmission Date: 20060218
  Serious: No
  Sender: FDA-Public Use
  Company Number: MK200509-0204-1

PATIENT
  Age: 79 Year
  Sex: Female

DRUGS (19)
  1. NEUTROSPEC [Suspect]
     Indication: PYREXIA
     Dosage: 20 MCI, ONE TIME, IV
     Route: 042
     Dates: start: 20050916, end: 20050916
  2. STALEVO 100 [Concomitant]
  3. LORAZEPAM [Concomitant]
  4. CLONAZEPAM [Concomitant]
  5. RISPERDAL [Concomitant]
  6. LEXAPRO [Concomitant]
  7. ASPIRIN [Concomitant]
  8. PLAVIX [Concomitant]
  9. LASIX [Concomitant]
  10. KLOR-CON [Concomitant]
  11. ZOCOR [Concomitant]
  12. NORVASC [Concomitant]
  13. METOPROLOL [Concomitant]
  14. COGENTIN [Concomitant]
  15. CLARINEX [Concomitant]
  16. TIMOLOL MALEATE [Concomitant]
  17. XALATAN [Concomitant]
  18. ISOPTO-CARBACHOL [Concomitant]
  19. NEOSPORIN [Concomitant]

REACTIONS (4)
  - BLOOD PRESSURE DECREASED [None]
  - CHEST PAIN [None]
  - DYSPNOEA [None]
  - PAIN IN JAW [None]
